FAERS Safety Report 7201770-X (Version None)
Quarter: 2010Q4

REPORT INFORMATION
  Report Type: 
  Country: None (occurrence: None)
  Receive Date: 20101215
  Receipt Date: 20101201
  Transmission Date: 20110411
  Serious: Yes (Death)
  Sender: FDA-Public Use
  Company Number: AE 2010-397

PATIENT
  Age: 67 Year
  Sex: Male
  Weight: 190.4 kg

DRUGS (12)
  1. FAZACLO ODT [Suspect]
     Indication: SENILE DEMENTIA
     Dosage: 112.5 MG DAILY PO
     Route: 048
     Dates: start: 20100615, end: 20101128
  2. AMLODIPINE [Concomitant]
  3. BENZTROPINE MESYLATE [Concomitant]
  4. LUNESTA [Concomitant]
  5. EXELON [Concomitant]
  6. MODAFINIL [Concomitant]
  7. CARBIDOPA AND LEVODOPA [Concomitant]
  8. DOCUSATE [Concomitant]
  9. ACETAMINOPHEN [Concomitant]
  10. LEVOTHYROXINE [Concomitant]
  11. DEXTROMETHORPHAN [Concomitant]
  12. MILK OF MAGNESIA TAB [Concomitant]

REACTIONS (1)
  - DEATH [None]
